FAERS Safety Report 8595302-1 (Version None)
Quarter: 2012Q3

REPORT INFORMATION
  Report Type: 
  Country: None (occurrence: None)
  Receive Date: 20120815
  Receipt Date: 20120702
  Transmission Date: 20120928
  Serious: Yes (Hospitalization, Disabling, Other)
  Sender: FDA-Public Use
  Company Number: US-009507513-0411USA02294

PATIENT

DRUGS (5)
  1. ROFECOXIB [Suspect]
     Indication: COSTOCHONDRITIS
     Dosage: 25 MG, QD
     Route: 048
     Dates: start: 19990101, end: 20020101
  2. MECLIZINE [Concomitant]
  3. ROFECOXIB [Suspect]
     Dosage: 50 MG, QD
     Route: 048
     Dates: start: 19990101, end: 20020101
  4. RISPERDAL [Concomitant]
  5. ROFECOXIB [Suspect]
     Indication: JOINT DISLOCATION
     Dosage: 25 MG, BID
     Route: 048
     Dates: start: 19990101, end: 20020101

REACTIONS (61)
  - CONTUSION [None]
  - GONORRHOEA [None]
  - HEADACHE [None]
  - BACK PAIN [None]
  - ADVERSE EVENT [None]
  - CHEST PAIN [None]
  - ELECTROCARDIOGRAM CHANGE [None]
  - MUSCULOSKELETAL PAIN [None]
  - OTITIS MEDIA [None]
  - NAUSEA [None]
  - RENAL DISORDER [None]
  - HYPOAESTHESIA [None]
  - BLOOD CALCIUM DECREASED [None]
  - HEART RATE INCREASED [None]
  - ANXIETY [None]
  - PRURITUS [None]
  - IMPATIENCE [None]
  - DISABILITY [None]
  - HEAD INJURY [None]
  - MASTITIS [None]
  - URETHRITIS [None]
  - PSYCHOTIC DISORDER [None]
  - NECK PAIN [None]
  - UPPER RESPIRATORY TRACT INFECTION [None]
  - SCHIZOPHRENIA [None]
  - LOSS OF CONSCIOUSNESS [None]
  - MUSCULOSKELETAL DISORDER [None]
  - BLOOD PRESSURE INCREASED [None]
  - SCOLIOSIS [None]
  - DEPRESSION [None]
  - COUGH [None]
  - DRY MOUTH [None]
  - DRUG HYPERSENSITIVITY [None]
  - DIZZINESS [None]
  - ARTHRITIS [None]
  - RHINITIS ALLERGIC [None]
  - LIMB INJURY [None]
  - CHEST DISCOMFORT [None]
  - PSYCHOMOTOR HYPERACTIVITY [None]
  - BREAST MASS [None]
  - LACRIMATION INCREASED [None]
  - PAIN [None]
  - MEMORY IMPAIRMENT [None]
  - CEREBROVASCULAR ACCIDENT [None]
  - PNEUMONIA [None]
  - KIDNEY INFECTION [None]
  - LIVER INJURY [None]
  - CONJUNCTIVITIS [None]
  - MALAISE [None]
  - VISUAL IMPAIRMENT [None]
  - ARTHROPATHY [None]
  - EYE DISORDER [None]
  - GASTRITIS [None]
  - DYSPHAGIA [None]
  - MUSCLE STRAIN [None]
  - FEELING HOT [None]
  - CHEST INJURY [None]
  - CERVICAL SPINE FLATTENING [None]
  - CARDIAC DISORDER [None]
  - MYOCARDIAL INFARCTION [None]
  - DISLOCATION OF VERTEBRA [None]
